FAERS Safety Report 8806583 (Version 2)
Quarter: 2012Q4

REPORT INFORMATION
  Report Type: 
  Country: US (occurrence: US)
  Receive Date: 20120925
  Receipt Date: 20121108
  Transmission Date: 20130627
  Serious: Yes (Hospitalization, Other)
  Sender: FDA-Public Use
  Company Number: US-BAYER-2012-097116

PATIENT
  Age: 16 Year
  Sex: Female

DRUGS (5)
  1. YASMIN [Suspect]
     Indication: ACNE
     Dosage: UNK
     Dates: start: 20060101, end: 2008
  2. YASMIN [Suspect]
     Indication: PREMENSTRUAL SYNDROME
  3. ATTENTION DEFICIT MEDICATIONS [Concomitant]
     Indication: ATTENTION IMPAIRED
  4. SYNTHROID [Concomitant]
     Indication: THYROID DISORDER
  5. NSAID^S [Concomitant]

REACTIONS (11)
  - Cerebrovascular accident [None]
  - Cholecystectomy [None]
  - VIIth nerve paralysis [None]
  - Bipolar I disorder [None]
  - Pain [None]
  - General physical health deterioration [None]
  - Injury [None]
  - Emotional distress [None]
  - Anhedonia [None]
  - Anxiety [None]
  - Pain [None]
